FAERS Safety Report 24080219 (Version 1)
Quarter: 2024Q3

REPORT INFORMATION
  Report Type: Spontaneous
  Country: FR (occurrence: None)
  Receive Date: 20240711
  Receipt Date: 20240711
  Transmission Date: 20241017
  Serious: Yes (Hospitalization, Other)
  Sender: ASTRAZENECA
  Company Number: 2024A152642

PATIENT
  Sex: Female
  Weight: 2.4 kg

DRUGS (6)
  1. DAPAGLIFLOZIN [Suspect]
     Active Substance: DAPAGLIFLOZIN
     Indication: Dilated cardiomyopathy
     Route: 064
     Dates: start: 20210911, end: 20210920
  2. ENTRESTO [Suspect]
     Active Substance: SACUBITRIL\VALSARTAN
     Indication: Dilated cardiomyopathy
     Dosage: 1CP MORNING AND EVENING
     Route: 064
     Dates: start: 20210824, end: 20210920
  3. ALDACTONE [Suspect]
     Active Substance: SPIRONOLACTONE
     Indication: Dilated cardiomyopathy
     Route: 064
     Dates: start: 20210824, end: 20210920
  4. FUROSEMIDE [Suspect]
     Active Substance: FUROSEMIDE
     Indication: Dilated cardiomyopathy
     Dosage: 1CP IN THE MORNING, THEN FROM 20/09/2021 2 CP PER DAY (40MG)
     Route: 064
     Dates: start: 20210824, end: 20220427
  5. BISOPROLOL FUMARATE [Suspect]
     Active Substance: BISOPROLOL FUMARATE
     Indication: Dilated cardiomyopathy
     Route: 064
     Dates: start: 20210824, end: 20210920
  6. BISOPROLOL FUMARATE [Suspect]
     Active Substance: BISOPROLOL FUMARATE
     Indication: Dilated cardiomyopathy
     Dosage: 5 MG IN THE MORNING, THEN INCREASED TO 5 MG IN THE MORNING AND EVENING
     Route: 064
     Dates: start: 20210920, end: 20220427

REACTIONS (4)
  - Patent ductus arteriosus [Unknown]
  - Left ventricular dysfunction [Unknown]
  - Maternal exposure during pregnancy [Recovered/Resolved]
  - Maternal exposure during pregnancy [Recovered/Resolved]
